FAERS Safety Report 6006944-1 (Version None)
Quarter: 2008Q4

REPORT INFORMATION
  Report Type: 
  Country: None (occurrence: None)
  Receive Date: 20081217
  Receipt Date: 20071128
  Transmission Date: 20090506
  Serious: Yes (Hospitalization)
  Sender: FDA-Public Use
  Company Number: US-ASTRAZENECA-2007UW27214

PATIENT
  Age: 56 Year
  Sex: Male
  Weight: 80.7 kg

DRUGS (6)
  1. CRESTOR [Suspect]
     Indication: BLOOD CHOLESTEROL INCREASED
     Route: 048
     Dates: start: 20071001
  2. PLAVIX [Concomitant]
  3. CAPOTEN [Concomitant]
  4. NEXIUM [Concomitant]
     Route: 048
  5. ASPIRIN [Concomitant]
  6. ZOMAX [Concomitant]

REACTIONS (3)
  - BACK PAIN [None]
  - MUSCULAR WEAKNESS [None]
  - PAIN IN EXTREMITY [None]
